FAERS Safety Report 9396312 (Version 1)
Quarter: 2013Q3

REPORT INFORMATION
  Report Type: Spontaneous
  Country: US (occurrence: None)
  Receive Date: 20130708
  Receipt Date: 20130708
  Transmission Date: 20140515
  Serious: Yes (Other)
  Sender: FDA-Public Use
  Company Number: 2013AP005500

PATIENT
  Age: 81 Year
  Sex: Male

DRUGS (24)
  1. SERTRALINE [Suspect]
  2. ALBUTEROL [Suspect]
  3. MONTELUKAST [Suspect]
  4. CLONAZEPAM TABLETS, USP [Suspect]
  5. OLANZAPINE [Suspect]
  6. TRAZODONE [Suspect]
  7. PREDNISONE [Suspect]
  8. FUROSEMIDE [Suspect]
  9. GLYBURIDE [Suspect]
  10. SALMETEROL [Suspect]
  11. BECLOMETASONE DIPROPIONATE [Suspect]
  12. SPIRONOLACTONE [Suspect]
  13. CLONAZEPAM [Concomitant]
  14. OLANZAPINE [Concomitant]
  15. TRAZODONE [Concomitant]
  16. COTRIMOXAZOLE [Concomitant]
  17. PREDNISONE [Concomitant]
  18. FUROSEMIDE [Concomitant]
  19. SPIRONOLACTONE [Concomitant]
  20. GLIBENCLAMIDE [Concomitant]
  21. SALBUTAMOL [Concomitant]
  22. SALMETEROL [Concomitant]
  23. BECLOMETASONE [Concomitant]
  24. MONTELUKAST [Concomitant]

REACTIONS (2)
  - Renal failure acute [None]
  - Lymphomatoid papulosis [None]
